FAERS Safety Report 4873514-8 (Version None)
Quarter: 2005Q4

REPORT INFORMATION
  Report Type: 
  Country: None (occurrence: None)
  Receive Date: 20051201
  Receipt Date: 20050819
  Transmission Date: 20060501
  Serious: No
  Sender: FDA-Public Use
  Company Number: 2005PV001434

PATIENT
  Age: 66 Year
  Sex: Female
  Weight: 78.0187 kg

DRUGS (7)
  1. BYETTA [Suspect]
     Indication: DIABETES MELLITUS NON-INSULIN-DEPENDENT
     Dosage: 5 MCG; BID; SC
     Route: 058
     Dates: start: 20050718
  2. VYTORIN [Suspect]
     Indication: BLOOD CHOLESTEROL
     Route: 065
     Dates: start: 20050701
  3. METFORMIN [Concomitant]
  4. HUMALOG MIX 75/25 [Concomitant]
  5. NIASPAN [Concomitant]
  6. CELEBREX [Concomitant]
  7. AVAPRO [Concomitant]

REACTIONS (7)
  - ARTHRALGIA [None]
  - BACK PAIN [None]
  - EARLY SATIETY [None]
  - MALAISE [None]
  - NAUSEA [None]
  - PAIN IN EXTREMITY [None]
  - WEIGHT DECREASED [None]
